FAERS Safety Report 4524559-9 (Version None)
Quarter: 2004Q4

REPORT INFORMATION
  Report Type: 
  Country: None (occurrence: None)
  Receive Date: 20041117
  Receipt Date: 20040902
  Transmission Date: 20050328
  Serious: Yes (Hospitalization)
  Sender: FDA-Public Use
  Company Number: US-JNJFOC-20040500367

PATIENT
  Age: 63 Year
  Sex: Female
  Weight: 60.782 kg

DRUGS (9)
  1. LEVAQUIN [Suspect]
     Indication: URINARY TRACT INFECTION
     Dosage: 250 MG, 1 IN 1 DAY, ORAL
     Route: 048
     Dates: start: 20040426, end: 20040426
  2. PROZAC [Concomitant]
  3. BEXTRA [Concomitant]
  4. LAMICTAL [Concomitant]
  5. AXERT [Concomitant]
  6. XANAX [Concomitant]
  7. TIMOPTIC EYEDROPS (TIMOLOL MALEATE) [Concomitant]
  8. PROTONIX [Concomitant]
  9. CAPOTEN [Concomitant]

REACTIONS (4)
  - CARDIAC FAILURE [None]
  - RESPIRATORY FAILURE [None]
  - SWELLING FACE [None]
  - WHEEZING [None]
